FAERS Safety Report 13172003 (Version 2)
Quarter: 2017Q1

REPORT INFORMATION
  Report Type: Spontaneous
  Country: US (occurrence: US)
  Receive Date: 20170201
  Receipt Date: 20170215
  Transmission Date: 20170428
  Serious: No
  Sender: FDA-Public Use
  Company Number: US-PFIZER INC-2017044380

PATIENT
  Age: 88 Year
  Sex: Male
  Weight: 102 kg

DRUGS (3)
  1. LYRICA [Suspect]
     Active Substance: PREGABALIN
     Dosage: 75 MG, 4X/DAY
  2. LYRICA [Suspect]
     Active Substance: PREGABALIN
     Indication: NEUROPATHY PERIPHERAL
     Dosage: 375 MG, 1X/DAY, TWO 75 MG IN THE MORNING AND 3 AT NIGHT
  3. LYRICA [Suspect]
     Active Substance: PREGABALIN
     Indication: DIABETIC NEUROPATHY
     Dosage: 300 MG, 1X/DAY, TWO IN THE MORNING AND TWO IN THE AFTERNOON

REACTIONS (2)
  - Feeling abnormal [Unknown]
  - Drug ineffective [Unknown]
